FAERS Safety Report 8365049-5 (Version None)
Quarter: 2012Q2

REPORT INFORMATION
  Report Type: 
  Country: None (occurrence: None)
  Receive Date: 20120516
  Receipt Date: 20120508
  Transmission Date: 20120825
  Serious: Yes (Disabling)
  Sender: FDA-Public Use
  Company Number: DE-GLAXOSMITHKLINE-D0075394A

PATIENT
  Sex: Male
  Weight: 65 kg

DRUGS (10)
  1. AMLODIPINE [Concomitant]
     Dosage: 10MG PER DAY
     Route: 048
  2. LEVOTHYROXINE SODIUM [Concomitant]
     Dosage: 200UG PER DAY
     Route: 048
  3. POLYETHYLENE GLYCOL [Concomitant]
     Dosage: 1BAG PER DAY
     Route: 048
  4. CALCIUM POLYSTYRENE SULPHONATE [Concomitant]
     Route: 048
  5. SIMVASTATIN [Concomitant]
     Dosage: 40MG PER DAY
     Route: 048
  6. CLOPIDOGREL [Concomitant]
     Dosage: 75MG PER DAY
     Route: 048
  7. TORSEMIDE [Concomitant]
     Dosage: 5MG PER DAY
     Route: 048
  8. SODIUM BICARBONATE IN NORMAL SALINE [Concomitant]
     Dosage: 1G UNKNOWN
     Route: 048
  9. VOTRIENT [Suspect]
     Indication: RENAL CELL CARCINOMA
     Dosage: 400MG TWICE PER DAY
     Route: 048
     Dates: start: 20111129, end: 20120403
  10. METOCLOPRAMID DROPS [Concomitant]
     Dosage: 30DROP AS REQUIRED
     Route: 048

REACTIONS (1)
  - RENAL FAILURE [None]
